FAERS Safety Report 15550184 (Version 2)
Quarter: 2020Q3

REPORT INFORMATION
  Report Type: Report from Study
  Country: CZ (occurrence: CZ)
  Receive Date: 20181025
  Receipt Date: 20190527
  Transmission Date: 20201105
  Serious: Yes (Life-Threatening, Hospitalization)
  Sender: FDA-Public Use
  Company Number: CZ-ROCHE-2199639

PATIENT
  Sex: Male

DRUGS (4)
  1. ALECTINIB. [Suspect]
     Active Substance: ALECTINIB
     Indication: LUNG ADENOCARCINOMA
     Route: 048
     Dates: start: 20180615
  2. DOCETAXEL. [Concomitant]
     Active Substance: DOCETAXEL
     Indication: LUNG ADENOCARCINOMA
     Route: 065
     Dates: start: 20090427
  3. XARELTO [Concomitant]
     Active Substance: RIVAROXABAN
     Indication: VENOUS THROMBOSIS
  4. CISPLATIN. [Concomitant]
     Active Substance: CISPLATIN
     Indication: LUNG ADENOCARCINOMA
     Route: 065
     Dates: end: 20080919

REACTIONS (3)
  - Diverticulitis [Recovering/Resolving]
  - Peritonitis [Recovering/Resolving]
  - Diverticular perforation [Recovering/Resolving]

NARRATIVE: CASE EVENT DATE: 20181002
